FAERS Safety Report 5087110-3 (Version None)
Quarter: 2006Q3

REPORT INFORMATION
  Report Type: 
  Country: None (occurrence: None)
  Receive Date: 20060821
  Receipt Date: 20060809
  Transmission Date: 20061208
  Serious: Yes (Hospitalization)
  Sender: FDA-Public Use
  Company Number: 2006087503

PATIENT
  Age: 52 Year
  Sex: Male

DRUGS (2)
  1. ZELDOX (CAPSULES) (ZIPRASIDONE) [Suspect]
     Dosage: 160 MG (80 MG, 2 IN 1 D)
  2. OLANZAPINE [Concomitant]

REACTIONS (2)
  - BILE DUCT STONE [None]
  - PANCREATITIS [None]
